FAERS Safety Report 22522421 (Version 2)
Quarter: 2023Q2

REPORT INFORMATION
  Report Type: Spontaneous
  Country: US (occurrence: US)
  Receive Date: 20230605
  Receipt Date: 20230615
  Transmission Date: 20230722
  Serious: No
  Sender: FDA-Public Use
  Company Number: US-002147023-NVSC2023US126809

PATIENT
  Age: 58 Year
  Sex: Female

DRUGS (6)
  1. COMBIPATCH [Suspect]
     Active Substance: ESTRADIOL\NORETHINDRONE ACETATE
     Indication: Menopausal symptoms
     Dosage: 00.5/0.14 MG, BIW (ON MONDAY AND FRIDAY)
     Route: 062
     Dates: start: 202210
  2. COMBIPATCH [Suspect]
     Active Substance: ESTRADIOL\NORETHINDRONE ACETATE
     Dosage: 0.05/0.14 MG, BIW (ON MONDAY AND FRIDAY)
     Route: 062
     Dates: start: 202302
  3. COMBIPATCH [Suspect]
     Active Substance: ESTRADIOL\NORETHINDRONE ACETATE
     Dosage: 0.05/0.14 MG, BIW (ON MONDAY AND FRIDAY)
     Route: 062
     Dates: start: 202303
  4. COMBIPATCH [Suspect]
     Active Substance: ESTRADIOL\NORETHINDRONE ACETATE
     Dosage: 0.05/0.14 MG, BIW (ON MONDAY AND FRIDAY)
     Route: 062
     Dates: start: 202304
  5. COMBIPATCH [Suspect]
     Active Substance: ESTRADIOL\NORETHINDRONE ACETATE
     Dosage: 0.05/0.14 MG, BIW (ON MONDAY AND FRIDAY)
     Route: 062
     Dates: start: 202305
  6. CLIMARA PRO [Concomitant]
     Active Substance: ESTRADIOL\LEVONORGESTREL
     Indication: Product used for unknown indication
     Dosage: UNK
     Route: 065

REACTIONS (11)
  - Application site pruritus [Not Recovered/Not Resolved]
  - Application site erythema [Not Recovered/Not Resolved]
  - Application site dryness [Not Recovered/Not Resolved]
  - Application site urticaria [Unknown]
  - Application site scab [Not Recovered/Not Resolved]
  - Application site irritation [Not Recovered/Not Resolved]
  - Application site haemorrhage [Recovered/Resolved]
  - Application site reaction [Not Recovered/Not Resolved]
  - Product storage error [Not Recovered/Not Resolved]
  - Product administration error [Not Recovered/Not Resolved]
  - Off label use [Not Recovered/Not Resolved]

NARRATIVE: CASE EVENT DATE: 20230201
